FAERS Safety Report 19148178 (Version 2)
Quarter: 2025Q3

REPORT INFORMATION
  Report Type: Spontaneous
  Country: EU (occurrence: EU)
  Receive Date: 20210417
  Receipt Date: 20250713
  Transmission Date: 20251021
  Serious: Yes (Hospitalization)
  Sender: JOHNSON AND JOHNSON
  Company Number: EU-JNJFOC-20210414887

PATIENT
  Age: 27 Year
  Sex: Female

DRUGS (3)
  1. HALOPERIDOL [Suspect]
     Active Substance: HALOPERIDOL
     Indication: Restlessness
     Dosage: (MAXIMUM DAILY DOSE 8 MG
  2. MIDAZOLAM [Suspect]
     Active Substance: MIDAZOLAM
     Indication: Restlessness
     Route: 065
  3. LORAZEPAM [Suspect]
     Active Substance: LORAZEPAM
     Indication: Restlessness
     Dosage: (MAXIMUM DAILY DOSE 20 MG)
     Route: 065

REACTIONS (5)
  - Catatonia [Recovered/Resolved]
  - Trismus [Recovered/Resolved]
  - Chills [Recovered/Resolved]
  - Hyperkinesia [Recovered/Resolved]
  - Echolalia [Recovered/Resolved]
